FAERS Safety Report 7415954-9 (Version None)
Quarter: 2011Q2

REPORT INFORMATION
  Report Type: 
  Country: None (occurrence: None)
  Receive Date: 20110414
  Receipt Date: 20110405
  Transmission Date: 20111010
  Serious: Yes (Other)
  Sender: FDA-Public Use
  Company Number: PHHY2011MX28363

PATIENT
  Age: 48 Year
  Sex: Female

DRUGS (2)
  1. LEFLUNOMIDE [Suspect]
     Dosage: 100 MG, QD FOR THREE DAYS
     Route: 048
  2. LEFLUNOMIDE [Suspect]
     Dosage: 20 MG, QD
     Route: 048

REACTIONS (5)
  - POLYNEUROPATHY [None]
  - ASTHENIA [None]
  - DYSAESTHESIA [None]
  - PARAESTHESIA [None]
  - HYPOREFLEXIA [None]
